FAERS Safety Report 8133494-9 (Version None)
Quarter: 2012Q1

REPORT INFORMATION
  Report Type: 
  Country: None (occurrence: None)
  Receive Date: 20120213
  Receipt Date: 20120201
  Transmission Date: 20120608
  Serious: Yes (Other)
  Sender: FDA-Public Use
  Company Number: JP-PFIZER INC-2012009305

PATIENT
  Age: 77 Year
  Sex: Female

DRUGS (10)
  1. FAMOTIDINE [Concomitant]
     Dosage: UNK
     Route: 048
  2. PLAVIX [Concomitant]
     Dosage: UNK
     Route: 048
  3. MAGMITT [Concomitant]
     Dosage: UNK
     Route: 048
  4. ALMARL [Concomitant]
     Dosage: UNK
     Route: 048
  5. SERTRALINE HYDROCHLORIDE [Concomitant]
     Dosage: UNK
     Route: 048
  6. EPEL [Concomitant]
     Dosage: UNK
     Route: 048
  7. ATORVASTATIN CALCIUM [Suspect]
     Indication: HYPERCHOLESTEROLAEMIA
     Dosage: 10 MG, 1X/DAY
     Route: 048
     Dates: start: 20101223, end: 20110216
  8. MONTELUKAST SODIUM [Concomitant]
     Dosage: UNK
     Route: 048
  9. ALFACALCIDOL [Concomitant]
     Dosage: UNK
     Route: 048
  10. REBAMIPIDE [Concomitant]
     Dosage: UNK
     Route: 048

REACTIONS (3)
  - BLOOD CREATINE PHOSPHOKINASE INCREASED [None]
  - GAMMA-GLUTAMYLTRANSFERASE INCREASED [None]
  - RHABDOMYOLYSIS [None]
